FAERS Safety Report 9402179 (Version 1)
Quarter: 2013Q3

REPORT INFORMATION
  Report Type: Spontaneous
  Country: US (occurrence: US)
  Receive Date: 20130716
  Receipt Date: 20130716
  Transmission Date: 20140515
  Serious: No
  Sender: FDA-Public Use
  Company Number: US-GLAXOSMITHKLINE-A0996909A

PATIENT
  Age: 36 Year
  Sex: Male

DRUGS (14)
  1. NICORETTE MINIS MINT 2 MG [Suspect]
     Indication: EX-TOBACCO USER
  2. NICORETTE NICOTINE POLACRILEX MINT LOZENGE, 4MG [Suspect]
     Indication: EX-TOBACCO USER
  3. NICORETTE NICOTINE POLACRILEX LOZENGE [Suspect]
     Indication: EX-TOBACCO USER
  4. NICORETTE CINNAMON SURGE OTC [Suspect]
     Indication: EX-TOBACCO USER
  5. NICORETTE FRUIT CHILL OTC [Suspect]
     Indication: EX-TOBACCO USER
  6. NICORETTE OTC, MINT [Suspect]
     Indication: EX-TOBACCO USER
  7. NICORETTE OTC GUM, ORIGINAL [Suspect]
     Indication: EX-TOBACCO USER
  8. EQUATE NTS 7MG [Suspect]
     Indication: EX-TOBACCO USER
  9. EQUATE NTS 14MG [Suspect]
     Indication: EX-TOBACCO USER
  10. EQUATE NTS 21MG [Suspect]
     Indication: EX-TOBACCO USER
  11. TARGET NTS CLEAR [Suspect]
     Indication: EX-TOBACCO USER
  12. NICODERM CQ 21MG [Suspect]
     Indication: EX-TOBACCO USER
  13. NICODERM CQ 14MG [Suspect]
     Indication: EX-TOBACCO USER
  14. NICODERM CQ 7MG [Suspect]
     Indication: EX-TOBACCO USER

REACTIONS (9)
  - Throat irritation [Unknown]
  - Drug administration error [Unknown]
  - Oropharyngeal pain [Unknown]
  - Oral pain [Recovered/Resolved]
  - Lip pain [Recovered/Resolved]
  - Glossodynia [Recovered/Resolved]
  - Gingival pain [Recovered/Resolved]
  - Paraesthesia [Recovered/Resolved]
  - Hypoaesthesia [Recovered/Resolved]
